FAERS Safety Report 21003877 (Version 1)
Quarter: 2022Q2

REPORT INFORMATION
  Report Type: Spontaneous
  Country: NL (occurrence: NL)
  Receive Date: 20220624
  Receipt Date: 20220624
  Transmission Date: 20220721
  Serious: Yes (Hospitalization)
  Sender: FDA-Public Use
  Company Number: None

PATIENT
  Age: 30 Year
  Sex: Male
  Weight: 98 kg

DRUGS (3)
  1. CLOZAPINE [Suspect]
     Active Substance: CLOZAPINE
     Indication: Psychotic disorder
     Dosage: 200 MILLIGRAM, Q8H (3X PER DAY 1 TABLET. TOTAL 600MG)
     Route: 065
     Dates: start: 20220201
  2. LORAZEPAM [Concomitant]
     Active Substance: LORAZEPAM
     Dosage: TABLET, 2,5 MG (MILLIGRAM)
     Route: 065
  3. ATROPINE [Concomitant]
     Active Substance: ATROPINE
     Dosage: DRINK, 0.1 MG/ML
     Route: 065

REACTIONS (4)
  - Ileus paralytic [Recovering/Resolving]
  - Constipation [Recovering/Resolving]
  - Abdominal pain [Unknown]
  - Nausea [Unknown]

NARRATIVE: CASE EVENT DATE: 20220318
